FAERS Safety Report 6831994-2 (Version None)
Quarter: 2010Q3

REPORT INFORMATION
  Report Type: 
  Country: None (occurrence: None)
  Receive Date: 20100712
  Receipt Date: 20100630
  Transmission Date: 20110219
  Serious: Yes (Hospitalization, Other)
  Sender: FDA-Public Use
  Company Number: CA-PFIZER INC-2009251177

PATIENT
  Age: 59 Year
  Sex: Male

DRUGS (10)
  1. NEURONTIN [Suspect]
     Indication: BACK PAIN
     Dosage: 800 MG, 4X/DAY
     Route: 048
  2. ATENOLOL [Suspect]
     Dosage: 50 MG, 1X/DAY
     Route: 048
  3. MS CONTIN [Suspect]
     Dosage: 60 MG, 3X/DAY
     Route: 048
  4. ISORDIL [Concomitant]
  5. LIPITOR [Concomitant]
     Dosage: 40 MG, 1X/DAY
  6. ACETYLSALICYLIC ACID [Concomitant]
     Dosage: 81 MG, 1X/DAY
  7. ALTACE [Concomitant]
     Dosage: 2.5 MG, 1X/DAY
  8. COLACE [Concomitant]
  9. VIOXX [Concomitant]
  10. NITRO-SPRAY [Concomitant]

REACTIONS (6)
  - ADJUSTMENT DISORDER [None]
  - ANGER [None]
  - INTENTIONAL OVERDOSE [None]
  - MAJOR DEPRESSION [None]
  - PSYCHIATRIC SYMPTOM [None]
  - SUICIDE ATTEMPT [None]
